FAERS Safety Report 10797292 (Version 2)
Quarter: 2015Q1

REPORT INFORMATION
  Report Type: Spontaneous
  Country: US (occurrence: US)
  Receive Date: 20150216
  Receipt Date: 20150331
  Transmission Date: 20150721
  Serious: Yes (Hospitalization)
  Sender: FDA-Public Use
  Company Number: US-JNJFOC-20150120280

PATIENT
  Age: 70 Year
  Sex: Male
  Weight: 97.52 kg

DRUGS (14)
  1. SYMLIN [Concomitant]
     Active Substance: PRAMLINTIDE ACETATE
     Route: 065
  2. ALTACE [Concomitant]
     Active Substance: RAMIPRIL
     Route: 065
  3. INVOKANA [Suspect]
     Active Substance: CANAGLIFLOZIN
     Indication: DIABETES MELLITUS
     Dosage: MORNING DOSE
     Route: 048
     Dates: start: 201401, end: 20140417
  4. RAMIPRIL. [Concomitant]
     Active Substance: RAMIPRIL
     Route: 065
  5. LANTUS [Concomitant]
     Active Substance: INSULIN GLARGINE
     Route: 065
  6. POTASSIUM CITRATE. [Concomitant]
     Active Substance: POTASSIUM CITRATE
     Route: 065
  7. LIPITOR [Concomitant]
     Active Substance: ATORVASTATIN CALCIUM
     Route: 065
  8. ZANTAC [Concomitant]
     Active Substance: RANITIDINE HYDROCHLORIDE
     Route: 065
  9. CO-Q10 [Concomitant]
     Route: 065
  10. NOVOLOG [Concomitant]
     Active Substance: INSULIN ASPART
     Route: 065
  11. VITAMIN C [Concomitant]
     Active Substance: ASCORBIC ACID
     Route: 065
  12. METFORMIN [Concomitant]
     Active Substance: METFORMIN HYDROCHLORIDE
     Route: 065
  13. ASPIRIN. [Concomitant]
     Active Substance: ASPIRIN
     Route: 065
  14. ALLOPURINOL. [Concomitant]
     Active Substance: ALLOPURINOL
     Route: 065

REACTIONS (5)
  - Renal failure [Recovered/Resolved]
  - Dysphagia [Unknown]
  - Fungal infection [Recovering/Resolving]
  - Dehydration [Unknown]
  - Calculus ureteric [Recovering/Resolving]

NARRATIVE: CASE EVENT DATE: 201404
